FAERS Safety Report 18630621 (Version 2)
Quarter: 2020Q4

REPORT INFORMATION
  Report Type: Spontaneous
  Country: FR (occurrence: FR)
  Receive Date: 20201218
  Receipt Date: 20201230
  Transmission Date: 20210114
  Serious: Yes (Hospitalization)
  Sender: FDA-Public Use
  Company Number: FR-AUROBINDO-AUR-APL-2020-060842

PATIENT
  Age: 82 Year
  Sex: Female

DRUGS (4)
  1. TERALITHE [Suspect]
     Active Substance: LITHIUM CARBONATE
     Indication: BIPOLAR DISORDER
     Dosage: 375 MILLIGRAM
     Route: 048
     Dates: end: 20201127
  2. CLOZAPINE MYLAN [Suspect]
     Active Substance: CLOZAPINE
     Indication: BIPOLAR DISORDER
     Dosage: 25 MILLIGRAM
     Route: 048
     Dates: start: 20201009, end: 20201112
  3. LAMOTRIGINE ARROW [Suspect]
     Active Substance: LAMOTRIGINE
     Indication: BIPOLAR DISORDER
     Dosage: 250 MILLIGRAM
     Route: 048
  4. SERESTA [Suspect]
     Active Substance: OXAZEPAM
     Indication: ANXIETY
     Dosage: 10 MILLIGRAM (1/2 CP PER DAY)
     Route: 048

REACTIONS (3)
  - Extrapyramidal disorder [Not Recovered/Not Resolved]
  - Fall [Not Recovered/Not Resolved]
  - Confusional state [Not Recovered/Not Resolved]

NARRATIVE: CASE EVENT DATE: 202011
